FAERS Safety Report 7688296-4 (Version None)
Quarter: 2011Q3

REPORT INFORMATION
  Report Type: 
  Country: None (occurrence: None)
  Receive Date: 20110817
  Receipt Date: 20101118
  Transmission Date: 20111222
  Serious: No
  Sender: FDA-Public Use
  Company Number: US-KINGPHARMUSA00001-K201001415

PATIENT
  Age: 64 Year
  Sex: Male

DRUGS (2)
  1. LEVOXYL [Concomitant]
     Indication: HYPOTHYROIDISM
     Dosage: UNK
     Route: 048
  2. CYTOMEL [Suspect]
     Indication: HYPOTHYROIDISM
     Dosage: 2.5 MCG, QD (TOTAL OF 3 DOSES TAKEN)
     Route: 060
     Dates: start: 20101116

REACTIONS (5)
  - ERYTHEMA [None]
  - SKIN CHAPPED [None]
  - PRURITUS [None]
  - SKIN SWELLING [None]
  - RASH [None]
